FAERS Safety Report 5482038-9 (Version None)
Quarter: 2007Q4

REPORT INFORMATION
  Report Type: 
  Country: None (occurrence: None)
  Receive Date: 20071004
  Receipt Date: 20070921
  Transmission Date: 20080405
  Serious: Yes (Life-Threatening)
  Sender: FDA-Public Use
  Company Number: CHNY2007GB03204

PATIENT
  Age: 95 Year
  Sex: 0

DRUGS (10)
  1. IBUPROFEN [Suspect]
     Indication: PAIN
     Dosage: 400 MG, TID, ORAL
     Route: 048
     Dates: start: 20070825, end: 20070901
  2. ACETYLSALICYLIC ACID SRT [Suspect]
     Dosage: 75 MG, ORAL
     Route: 048
     Dates: end: 20070901
  3. ALFUZOSIN (ALFUZOSIN) [Concomitant]
  4. CITALOPRAM [Concomitant]
  5. COMBIVENT (IPRATROPRIUM BROMIDE, SALBUTAMOL SULFATE) [Concomitant]
  6. DIGOXIN [Concomitant]
  7. FUROSEMIDE [Concomitant]
  8. MOVICOL (MACROGOL, POTASSIUM CHLORIDE, SODIUM BICARBONATE, SODIUM CHLO [Concomitant]
  9. QVAR [Concomitant]
  10. RAMIPRIL [Concomitant]

REACTIONS (1)
  - GASTROINTESTINAL HAEMORRHAGE [None]
